FAERS Safety Report 24120997 (Version 6)
Quarter: 2024Q4

REPORT INFORMATION
  Report Type: Spontaneous
  Country: US (occurrence: US)
  Receive Date: 20240722
  Receipt Date: 20241014
  Transmission Date: 20250114
  Serious: No
  Sender: PFIZER
  Company Number: US-PFIZER INC-PV202400095146

PATIENT
  Age: 81 Year
  Sex: Female

DRUGS (4)
  1. IBRANCE [Suspect]
     Active Substance: PALBOCICLIB
     Indication: Breast cancer
     Dosage: DAILY FOR 21 DAYS THEN BREAK FOR A WEEK
  2. IBRANCE [Suspect]
     Active Substance: PALBOCICLIB
     Dosage: 100 MG
  3. WARFARIN [Concomitant]
     Active Substance: WARFARIN
     Dosage: UNK
  4. LETROZOLE [Concomitant]
     Active Substance: LETROZOLE
     Indication: Breast cancer
     Dosage: UNK

REACTIONS (8)
  - Alopecia [Unknown]
  - Stomatitis [Unknown]
  - Nausea [Unknown]
  - White blood cell count decreased [Recovered/Resolved]
  - Fatigue [Unknown]
  - Dizziness postural [Unknown]
  - Fungal infection [Recovering/Resolving]
  - Dry skin [Unknown]

NARRATIVE: CASE EVENT DATE: 20240101
